FAERS Safety Report 17180248 (Version 1)
Quarter: 2019Q4

REPORT INFORMATION
  Report Type: Spontaneous
  Country: DZ (occurrence: DZ)
  Receive Date: 20191219
  Receipt Date: 20191219
  Transmission Date: 20200122
  Serious: Yes (Hospitalization)
  Sender: FDA-Public Use
  Company Number: DZ-CELLTRION INC.-2019DZ027451

PATIENT

DRUGS (2)
  1. RAS [Concomitant]
  2. REMSIMA [Suspect]
     Active Substance: INFLIXIMAB
     Indication: CROHN^S DISEASE
     Dosage: 525 MG
     Route: 042
     Dates: start: 2013, end: 2019

REACTIONS (3)
  - Erythema [Unknown]
  - Injection site pruritus [Unknown]
  - Hot flush [Unknown]

NARRATIVE: CASE EVENT DATE: 20191211
